FAERS Safety Report 25921077 (Version 2)
Quarter: 2025Q4

REPORT INFORMATION
  Report Type: Report from Study
  Country: US (occurrence: US)
  Receive Date: 20251014
  Receipt Date: 20251028
  Transmission Date: 20260117
  Serious: Yes (Other)
  Sender: BAYER HEALTHCARE PHARMACEUTICALS INC.
  Company Number: US-BAYER-2025A130678

PATIENT
  Age: 78 Year
  Sex: Female
  Weight: 77.551 kg

DRUGS (41)
  1. ADEMPAS [Suspect]
     Active Substance: RIOCIGUAT
     Indication: Pulmonary arterial hypertension
     Dosage: UNK
     Dates: start: 20250707
  2. ADEMPAS [Suspect]
     Active Substance: RIOCIGUAT
     Indication: Pulmonary arterial hypertension
     Dosage: 1.5 MG, TID
     Route: 048
  3. ADEMPAS [Suspect]
     Active Substance: RIOCIGUAT
     Indication: Pulmonary arterial hypertension
     Dosage: 1 MG, TID
     Route: 048
     Dates: start: 20250930
  4. ADEMPAS [Suspect]
     Active Substance: RIOCIGUAT
     Indication: Pulmonary arterial hypertension
     Dosage: 0.5 MG, TID
     Route: 048
     Dates: start: 20251011
  5. ACYCLOVIR [Concomitant]
     Active Substance: ACYCLOVIR
  6. CELEBREX [Concomitant]
     Active Substance: CELECOXIB
  7. FUROSEMIDE [Concomitant]
     Active Substance: FUROSEMIDE
  8. DICYCLOMINE HYDROCHLORIDE [Concomitant]
     Active Substance: DICYCLOMINE HYDROCHLORIDE
  9. ALBUTEROL\IPRATROPIUM [Concomitant]
     Active Substance: ALBUTEROL\IPRATROPIUM
  10. Artificial tears [Concomitant]
  11. ZYRTEC-D [Concomitant]
     Active Substance: CETIRIZINE HYDROCHLORIDE\PSEUDOEPHEDRINE HYDROCHLORIDE
  12. IMODIUM A-D [Concomitant]
     Active Substance: LOPERAMIDE HYDROCHLORIDE
  13. ROBINUL [Concomitant]
     Active Substance: GLYCOPYRROLATE
  14. JARDIANCE [Concomitant]
     Active Substance: EMPAGLIFLOZIN
  15. PROTONIX [Concomitant]
     Active Substance: PANTOPRAZOLE SODIUM
  16. BOTOX COSMETIC [Concomitant]
     Active Substance: ONABOTULINUMTOXINA
  17. IPRATROPIUM BROMIDE [Concomitant]
     Active Substance: IPRATROPIUM BROMIDE
  18. SYNTHROID [Concomitant]
     Active Substance: LEVOTHYROXINE SODIUM
  19. ATORVASTATIN CALCIUM [Concomitant]
     Active Substance: ATORVASTATIN CALCIUM
  20. CITALOPRAM HYDROBROMIDE [Concomitant]
     Active Substance: CITALOPRAM HYDROBROMIDE
  21. VITAMINS [Concomitant]
     Active Substance: VITAMINS
  22. LINZESS [Concomitant]
     Active Substance: LINACLOTIDE
  23. QUETIAPINE FUMARATE [Concomitant]
     Active Substance: QUETIAPINE FUMARATE
  24. METOPROLOL SUCCINATE [Concomitant]
     Active Substance: METOPROLOL SUCCINATE
  25. MELATONIN [Concomitant]
     Active Substance: MELATONIN
  26. ASPIRIN [Concomitant]
     Active Substance: ASPIRIN
  27. ROPINIROLE HYDROCHLORIDE [Concomitant]
     Active Substance: ROPINIROLE HYDROCHLORIDE
  28. SPIRONOLACTONE [Concomitant]
     Active Substance: SPIRONOLACTONE
  29. OXYGEN [Concomitant]
     Active Substance: OXYGEN
  30. LIDOCAINE [Concomitant]
     Active Substance: LIDOCAINE
  31. ADDERALL [Concomitant]
     Active Substance: AMPHETAMINE ASPARTATE\AMPHETAMINE SULFATE\DEXTROAMPHETAMINE SACCHARATE\DEXTROAMPHETAMINE SULFATE
  32. PRUCALOPRIDE [Concomitant]
     Active Substance: PRUCALOPRIDE
  33. ACETAMINOPHEN [Concomitant]
     Active Substance: ACETAMINOPHEN
  34. ONDANSETRON HYDROCHLORIDE [Concomitant]
     Active Substance: ONDANSETRON HYDROCHLORIDE
  35. WELLBUTRIN SR [Concomitant]
     Active Substance: BUPROPION HYDROCHLORIDE
  36. ENTRESTO [Concomitant]
     Active Substance: SACUBITRIL\VALSARTAN
  37. HYDROMORPHONE HCL [Concomitant]
     Active Substance: HYDROMORPHONE HYDROCHLORIDE
  38. METFORMIN [Concomitant]
     Active Substance: METFORMIN HYDROCHLORIDE
  39. WIXELA INHUB [Concomitant]
     Active Substance: FLUTICASONE PROPIONATE\SALMETEROL XINAFOATE
  40. ESTRADIOL [Concomitant]
     Active Substance: ESTRADIOL
  41. METOPROLOL [Concomitant]
     Active Substance: METOPROLOL
     Dosage: 25MG ONE TABLET DAILY.

REACTIONS (9)
  - Impaired gastric emptying [None]
  - Diverticulitis [None]
  - Depression [None]
  - Insomnia [Not Recovered/Not Resolved]
  - Hypotension [Not Recovered/Not Resolved]
  - Fatigue [None]
  - Dizziness [None]
  - Wrong technique in product usage process [None]
  - Arthralgia [None]

NARRATIVE: CASE EVENT DATE: 20250101
